FAERS Safety Report 9230854 (Version 1)
Quarter: 2013Q2

REPORT INFORMATION
  Report Type: Report from Study
  Country: US (occurrence: US)
  Receive Date: 20130415
  Receipt Date: 20130415
  Transmission Date: 20140414
  Serious: Yes (Other)
  Sender: FDA-Public Use
  Company Number: PHHO2013US004891

PATIENT
  Age: 60 Year
  Sex: Female
  Weight: 83.9 kg

DRUGS (9)
  1. SOM230 [Suspect]
     Indication: BREAST CANCER IN SITU
     Dosage: 600 UG, BID
     Route: 058
     Dates: start: 20130307
  2. SOM230 [Suspect]
     Dosage: 300 UG, BID
     Route: 058
     Dates: start: 20130311, end: 20130312
  3. SOM230 [Suspect]
     Dosage: 600 UG, (AM DOSE)
     Route: 058
     Dates: start: 20130313, end: 20130313
  4. WELLBUTRIN [Concomitant]
     Dosage: UNK
     Dates: end: 20130314
  5. VITAMIIN C [Concomitant]
  6. OSTELIN VITAMIN D [Concomitant]
  7. E VITAMIN E [Concomitant]
     Dosage: UNK
  8. MAGNESIUM [Concomitant]
  9. BENADRYL /00647601/ [Concomitant]
     Dosage: UNK
     Dates: end: 20130307

REACTIONS (1)
  - Gingival pain [Recovering/Resolving]
